FAERS Safety Report 21691642 (Version 1)
Quarter: 2022Q4

REPORT INFORMATION
  Report Type: Spontaneous
  Country: IN (occurrence: IN)
  Receive Date: 20221207
  Receipt Date: 20221207
  Transmission Date: 20230112
  Serious: Yes (Hospitalization, Other)
  Sender: FDA-Public Use
  Company Number: IN-FDC-2022INLIT00159

PATIENT
  Age: 58 Year
  Sex: Male

DRUGS (2)
  1. OFLOXACIN [Suspect]
     Active Substance: OFLOXACIN
     Indication: Diarrhoea
     Route: 065
  2. OFLOXACIN [Suspect]
     Active Substance: OFLOXACIN
     Route: 065

REACTIONS (3)
  - Pancytopenia [Recovered/Resolved]
  - Idiosyncratic drug reaction [Recovered/Resolved]
  - Product use in unapproved indication [Unknown]
